FAERS Safety Report 10253258 (Version 1)
Quarter: 2014Q2

REPORT INFORMATION
  Report Type: Spontaneous
  Country: US (occurrence: None)
  Receive Date: 20140619
  Receipt Date: 20140619
  Transmission Date: 20141212
  Serious: No
  Sender: FDA-Public Use
  Company Number: None

PATIENT
  Age: 67 Year
  Sex: Female
  Weight: 54.43 kg

DRUGS (1)
  1. GLYCATION DEFENCE [Suspect]
     Indication: PRODUCT USED FOR UNKNOWN INDICATION
     Dosage: 2 PER DAY ONCE DAILY TAKEN BY MOUTH
     Route: 048

REACTIONS (2)
  - Unevaluable event [None]
  - Laboratory test abnormal [None]
